FAERS Safety Report 25944070 (Version 1)
Quarter: 2025Q4

REPORT INFORMATION
  Report Type: Spontaneous
  Country: US (occurrence: US)
  Receive Date: 20251021
  Receipt Date: 20251021
  Transmission Date: 20260119
  Serious: No
  Sender: SANOFI AVENTIS
  Company Number: US-SA-2025SA310612

PATIENT
  Sex: Male

DRUGS (6)
  1. ELOCTATE [Suspect]
     Active Substance: EFMOROCTOCOG ALFA
     Indication: Factor VIII deficiency
     Dosage: INFUSE 1750 UNITS (1575-1925) SLOW IV PUSH AS NEEDED FOR MINOR BREAKTHROUGH BLEEDS. INFUSE3500 UNITS
     Route: 042
     Dates: start: 201907
  2. ELOCTATE [Suspect]
     Active Substance: EFMOROCTOCOG ALFA
     Indication: Factor VIII deficiency
     Dosage: INFUSE 1750 UNITS (1575-1925) SLOW IV PUSH AS NEEDED FOR MINOR BREAKTHROUGH BLEEDS. INFUSE3500 UNITS
     Route: 042
     Dates: start: 201907
  3. ELOCTATE [Suspect]
     Active Substance: EFMOROCTOCOG ALFA
     Dosage: INFUSE 3500 UNITS (3150-3850) SLOW IV PUSH AS NEEDED FOR SEVERE BREAKTHROUGH BLEED
     Route: 042
     Dates: start: 201907
  4. ELOCTATE [Suspect]
     Active Substance: EFMOROCTOCOG ALFA
     Dosage: INFUSE 3500 UNITS (3150-3850) SLOW IV PUSH AS NEEDED FOR SEVERE BREAKTHROUGH BLEED
     Route: 042
     Dates: start: 201907
  5. AMINOCAPROIC ACID [Concomitant]
     Active Substance: AMINOCAPROIC ACID
  6. HEMLIBRA [Concomitant]
     Active Substance: EMICIZUMAB-KXWH
     Indication: Prophylaxis

REACTIONS (1)
  - Haemorrhage [Unknown]
